FAERS Safety Report 6013574-4 (Version None)
Quarter: 2008Q4

REPORT INFORMATION
  Report Type: 
  Country: None (occurrence: None)
  Receive Date: 20081218
  Receipt Date: 20081218
  Transmission Date: 20090506
  Serious: No
  Sender: FDA-Public Use
  Company Number: None

PATIENT
  Sex: Female

DRUGS (2)
  1. HYDROMORPHONE HCL [Suspect]
     Indication: RHEUMATOID ARTHRITIS
     Dosage: TAKE 1 TABLET TWICE A DAY AS NEEDED.
  2. HYDROMORPHONE HCL [Suspect]
     Dosage: TABLETS DISPENSED IN AUGUST HAVE SAME NDC CODE. LOT NUMBER: 75809A; EXPIRATION DATE: 11/30/2010

REACTIONS (3)
  - DYSPNOEA [None]
  - PRODUCT QUALITY ISSUE [None]
  - TREMOR [None]
